FAERS Safety Report 25299383 (Version 1)
Quarter: 2025Q2

REPORT INFORMATION
  Report Type: Spontaneous
  Country: US (occurrence: US)
  Receive Date: 20250512
  Receipt Date: 20250512
  Transmission Date: 20250717
  Serious: Yes (Life-Threatening, Hospitalization, Other)
  Sender: UNICHEM
  Company Number: US-UNICHEM LABORATORIES LIMITED-UNI-2025-US-002164

PATIENT

DRUGS (2)
  1. BACLOFEN [Suspect]
     Active Substance: BACLOFEN
     Indication: Muscle spasticity
  2. BACLOFEN [Suspect]
     Active Substance: BACLOFEN
     Route: 048

REACTIONS (8)
  - Toxicity to various agents [Unknown]
  - Respiratory distress [Unknown]
  - Overdose [Unknown]
  - Respiratory acidosis [Unknown]
  - Cardiac arrest [Unknown]
  - Mental status changes [Unknown]
  - Electrocardiogram QT prolonged [Unknown]
  - Ventricular tachycardia [Unknown]
